FAERS Safety Report 5378019-6 (Version None)
Quarter: 2007Q2

REPORT INFORMATION
  Report Type: 
  Country: None (occurrence: None)
  Receive Date: 20070629
  Receipt Date: 20070615
  Transmission Date: 20071010
  Serious: Yes (Hospitalization)
  Sender: FDA-Public Use
  Company Number: 2007S1003795

PATIENT
  Age: 69 Year
  Sex: Female
  Weight: 79.3795 kg

DRUGS (2)
  1. FUROSEMIDE [Suspect]
     Indication: CARDIAC FAILURE CONGESTIVE
     Dosage: SEE IMAGE
     Route: 048
     Dates: end: 20070115
  2. FUROSEMIDE [Suspect]
     Indication: CARDIAC FAILURE CONGESTIVE
     Dosage: SEE IMAGE
     Route: 048
     Dates: start: 20070313

REACTIONS (8)
  - APHONIA [None]
  - ATRIOVENTRICULAR BLOCK [None]
  - CHEST PAIN [None]
  - EYE HAEMORRHAGE [None]
  - HYPERSENSITIVITY [None]
  - OPTIC NERVE DISORDER [None]
  - OPTIC NEURITIS [None]
  - THERAPEUTIC PRODUCT CONTAMINATION [None]
